FAERS Safety Report 20672683 (Version 2)
Quarter: 2022Q2

REPORT INFORMATION
  Report Type: Spontaneous
  Country: US (occurrence: US)
  Receive Date: 20220405
  Receipt Date: 20220408
  Transmission Date: 20220721
  Serious: Yes (Other)
  Sender: FDA-Public Use
  Company Number: US-ORGANON-O2204USA000117

PATIENT
  Age: 35 Year
  Sex: Female
  Weight: 62.585 kg

DRUGS (1)
  1. NEXPLANON [Suspect]
     Active Substance: ETONOGESTREL
     Indication: Contraception
     Dosage: 68 MILLIGRAM (MG) ROD, 1 IMPLANT ONCE IN LEFT ARM
     Route: 059
     Dates: start: 20220329, end: 20220329

REACTIONS (5)
  - Device expulsion [Recovered/Resolved]
  - Implant site scar [Unknown]
  - Implant site fibrosis [Unknown]
  - Device difficult to use [Recovered/Resolved]
  - Complication of device insertion [Recovered/Resolved]

NARRATIVE: CASE EVENT DATE: 20220329
